FAERS Safety Report 5213808-X (Version None)
Quarter: 2007Q1

REPORT INFORMATION
  Report Type: 
  Country: None (occurrence: None)
  Receive Date: 20070119
  Receipt Date: 20070110
  Transmission Date: 20070707
  Serious: Yes (Death, Other)
  Sender: FDA-Public Use
  Company Number: US-PFIZER INC-2005140620

PATIENT
  Sex: Male

DRUGS (6)
  1. NEURONTIN [Suspect]
     Indication: PAIN
  2. NEURONTIN [Suspect]
     Indication: NEURALGIA
  3. PARECOXIB SODIUM [Concomitant]
     Route: 065
  4. ALTACE [Concomitant]
     Route: 065
  5. ULTRAM [Concomitant]
     Route: 065
  6. OXYCONTIN [Concomitant]
     Route: 065

REACTIONS (3)
  - COMPLETED SUICIDE [None]
  - DRUG INEFFECTIVE [None]
  - GUN SHOT WOUND [None]
